FAERS Safety Report 13767274 (Version 1)
Quarter: 2017Q3

REPORT INFORMATION
  Report Type: Spontaneous
  Country: FR (occurrence: FR)
  Receive Date: 20170719
  Receipt Date: 20170719
  Transmission Date: 20171127
  Serious: Yes (Hospitalization)
  Sender: FDA-Public Use
  Company Number: FR-TEVA-787090ROM

PATIENT
  Age: 12 Year
  Sex: Male

DRUGS (2)
  1. TERCIAN 25 MG [Suspect]
     Active Substance: CYAMEMAZINE
     Indication: PRODUCT USED FOR UNKNOWN INDICATION
     Dosage: 37.5 MILLIGRAM DAILY;
     Route: 048
     Dates: start: 201608
  2. DELURSAN 500 MG [Suspect]
     Active Substance: URSODIOL
     Indication: BILIARY CIRRHOSIS
     Dosage: 500 MILLIGRAM DAILY;
     Route: 048
     Dates: start: 201512

REACTIONS (1)
  - Pancytopenia [Not Recovered/Not Resolved]

NARRATIVE: CASE EVENT DATE: 201612
